FAERS Safety Report 24895315 (Version 3)
Quarter: 2025Q1

REPORT INFORMATION
  Report Type: Spontaneous
  Country: RO (occurrence: RO)
  Receive Date: 20250128
  Receipt Date: 20250205
  Transmission Date: 20250409
  Serious: Yes (Other)
  Sender: ALEXION PHARMACEUTICALS
  Company Number: RO-RICHTER-2024-GR-009646

PATIENT
  Age: 81 Year

DRUGS (3)
  1. FASLODEX [Suspect]
     Active Substance: FULVESTRANT
     Indication: Disease progression
  2. FASLODEX [Suspect]
     Active Substance: FULVESTRANT
  3. PALBOCICLIB [Suspect]
     Active Substance: PALBOCICLIB
     Indication: Disease progression

REACTIONS (6)
  - Hepatic cytolysis [Unknown]
  - Thrombocytopenia [Unknown]
  - Leukopenia [Unknown]
  - Blood glucose abnormal [Unknown]
  - Anaemia [Unknown]
  - Fatigue [Unknown]
